FAERS Safety Report 17917987 (Version 1)
Quarter: 2020Q2

REPORT INFORMATION
  Report Type: Report from Study
  Country: NL (occurrence: NL)
  Receive Date: 20200619
  Receipt Date: 20200619
  Transmission Date: 20200714
  Serious: Yes (Hospitalization)
  Sender: FDA-Public Use
  Company Number: NVSC2020NL168295

PATIENT
  Age: 62 Year
  Sex: Male
  Weight: 95.3 kg

DRUGS (1)
  1. SANDOSTATIN LAR DEPOT [Suspect]
     Active Substance: OCTREOTIDE ACETATE
     Indication: GASTROINTESTINAL STOMA COMPLICATION
     Dosage: UNK
     Route: 065
     Dates: start: 20190717

REACTIONS (3)
  - Product use in unapproved indication [Unknown]
  - Tracheostomy malfunction [Recovered/Resolved]
  - Dyspnoea [Recovered/Resolved]

NARRATIVE: CASE EVENT DATE: 20200518
